FAERS Safety Report 17293422 (Version 1)
Quarter: 2020Q1

REPORT INFORMATION
  Report Type: Spontaneous
  Country: GB (occurrence: GB)
  Receive Date: 20200121
  Receipt Date: 20200121
  Transmission Date: 20200409
  Serious: Yes (Other)
  Sender: FDA-Public Use
  Company Number: GB-ACCORD-169836

PATIENT
  Age: 38 Year
  Sex: Female
  Weight: 78 kg

DRUGS (7)
  1. DOVONEX [Concomitant]
     Active Substance: CALCIPOTRIENE
     Indication: NAIL DISORDER
     Dosage: FOR AT LEAST 3 MONTHS
     Dates: start: 20190516
  2. CITALOPRAM [Concomitant]
     Active Substance: CITALOPRAM HYDROBROMIDE
     Dates: start: 20181010, end: 20191121
  3. LAMOTRIGINE. [Concomitant]
     Active Substance: LAMOTRIGINE
     Dates: start: 20190610, end: 20191121
  4. OLANZAPINE. [Concomitant]
     Active Substance: OLANZAPINE
     Dates: start: 20191128, end: 20200102
  5. DOXYCYCLINE. [Concomitant]
     Active Substance: DOXYCYCLINE
     Dosage: TWO NOW THEN ONE DAILY
     Dates: start: 20191021, end: 20191028
  6. SERTRALINE [Suspect]
     Active Substance: SERTRALINE HYDROCHLORIDE
     Indication: PRODUCT USED FOR UNKNOWN INDICATION
     Dates: start: 20191128
  7. HYDREX [Concomitant]
     Dosage: APPLY AS SHAMPOO
     Dates: start: 20191021, end: 20191022

REACTIONS (1)
  - Generalised tonic-clonic seizure [Recovered/Resolved]
